FAERS Safety Report 7783129-X (Version None)
Quarter: 2011Q3

REPORT INFORMATION
  Report Type: 
  Country: None (occurrence: None)
  Receive Date: 20110928
  Receipt Date: 20110922
  Transmission Date: 20111222
  Serious: Yes (Life-Threatening, Hospitalization)
  Sender: FDA-Public Use
  Company Number: PHHY2011JP73637

PATIENT
  Sex: Male

DRUGS (2)
  1. RASILEZ [Suspect]
     Dosage: 150 MG,
     Route: 048
     Dates: end: 20110801
  2. ACE INHIBITORS [Suspect]

REACTIONS (1)
  - RENAL FAILURE ACUTE [None]
